FAERS Safety Report 4428888-9 (Version None)
Quarter: 2004Q3

REPORT INFORMATION
  Report Type: 
  Country: None (occurrence: None)
  Receive Date: 20040817
  Receipt Date: 20040803
  Transmission Date: 20050211
  Serious: Yes (Hospitalization, Other)
  Sender: FDA-Public Use
  Company Number: 2004052414

PATIENT
  Age: 68 Year
  Sex: Female
  Weight: 90.2658 kg

DRUGS (1)
  1. NEOSPORIN [Suspect]
     Indication: DIABETIC NEUROPATHY
     Dosage: TOPICAL
     Route: 061
     Dates: start: 20040401, end: 20040803

REACTIONS (5)
  - BLISTER [None]
  - DERMATITIS EXFOLIATIVE [None]
  - DRUG HYPERSENSITIVITY [None]
  - DYSPNOEA [None]
  - PYREXIA [None]
